FAERS Safety Report 5447197-2 (Version None)
Quarter: 2007Q3

REPORT INFORMATION
  Report Type: 
  Country: None (occurrence: None)
  Receive Date: 20070910
  Receipt Date: 20070906
  Transmission Date: 20080115
  Serious: Yes (Life-Threatening)
  Sender: FDA-Public Use
  Company Number: PHRM2007FR02140

PATIENT
  Age: 60 Year
  Sex: Male

DRUGS (1)
  1. EXFORGE [Suspect]
     Dosage: 1 DF, QD
     Route: 048
     Dates: start: 20070828, end: 20070831

REACTIONS (2)
  - FEELING ABNORMAL [None]
  - SENSE OF OPPRESSION [None]
